FAERS Safety Report 14340925 (Version 1)
Quarter: 2018Q1

REPORT INFORMATION
  Report Type: Spontaneous
  Country: US (occurrence: US)
  Receive Date: 20180102
  Receipt Date: 20180102
  Transmission Date: 20180509
  Serious: Yes (Hospitalization)
  Sender: FDA-Public Use
  Company Number: US-DENTSPLY-2017SCDP000132

PATIENT
  Age: 54 Year
  Sex: Female

DRUGS (1)
  1. BENZOCAINE. [Suspect]
     Active Substance: BENZOCAINE
     Indication: ANALGESIC THERAPY
     Dosage: 20%, MULTIPLE TIMES DAILY
     Route: 061

REACTIONS (2)
  - Prescription drug used without a prescription [Unknown]
  - Methaemoglobinaemia [Recovering/Resolving]
